FAERS Safety Report 13449183 (Version 1)
Quarter: 2017Q2

REPORT INFORMATION
  Report Type: Spontaneous
  Country: GB (occurrence: GB)
  Receive Date: 20170417
  Receipt Date: 20170417
  Transmission Date: 20170830
  Serious: Yes (Other)
  Sender: FDA-Public Use
  Company Number: GB-ASTRAZENECA-2017SE40155

PATIENT
  Age: 41 Year
  Sex: Female
  Weight: 72.1 kg

DRUGS (2)
  1. COPAXONE [Concomitant]
     Active Substance: GLATIRAMER ACETATE
  2. SEROQUEL [Suspect]
     Active Substance: QUETIAPINE FUMARATE
     Indication: SCHIZOPHRENIA
     Dosage: 500 UNIT 3
     Route: 048
     Dates: start: 20070607

REACTIONS (5)
  - Amenorrhoea [Not Recovered/Not Resolved]
  - Suicidal ideation [Unknown]
  - Feeling of despair [Unknown]
  - Psychiatric symptom [Unknown]
  - Homosexuality [Not Recovered/Not Resolved]
